FAERS Safety Report 8089946-3 (Version None)
Quarter: 2012Q1

REPORT INFORMATION
  Report Type: 
  Country: None (occurrence: None)
  Receive Date: 20120129
  Receipt Date: 20111021
  Transmission Date: 20120608
  Serious: No
  Sender: FDA-Public Use
  Company Number: US-ABBOTT-11P-163-0867404-00

PATIENT
  Age: 55 Year
  Sex: Male

DRUGS (11)
  1. AMLODIPINE [Concomitant]
     Indication: BLOOD PRESSURE
  2. LISINOPRIL [Concomitant]
     Indication: BLOOD PRESSURE
  3. CINNAMON [Concomitant]
     Indication: PRODUCT USED FOR UNKNOWN INDICATION
  4. TRIAMTERENE AND HYDROCHLOROTHIAZIDE [Concomitant]
     Indication: BLOOD PRESSURE
     Dosage: 37.5/25 DAILY
  5. MULTI-VITAMINS [Concomitant]
     Indication: VITAMIN SUPPLEMENTATION
  6. POTASSIUM [Concomitant]
     Indication: MINERAL SUPPLEMENTATION
  7. PENTASA [Concomitant]
     Indication: CROHN'S DISEASE
  8. ASPIRIN [Concomitant]
     Indication: PROPHYLAXIS
  9. HUMIRA [Suspect]
     Indication: CROHN'S DISEASE
     Dates: start: 20071001
  10. FISH OIL [Concomitant]
     Indication: MEDICAL DIET
     Dosage: IN AM
  11. HYOSCYAMINE [Concomitant]
     Indication: CROHN'S DISEASE

REACTIONS (4)
  - CHEST PAIN [None]
  - RASH [None]
  - RASH PRURITIC [None]
  - SKIN WARM [None]
